FAERS Safety Report 9571395 (Version 1)
Quarter: 2013Q3

REPORT INFORMATION
  Report Type: Spontaneous
  Country: US (occurrence: None)
  Receive Date: 20130927
  Receipt Date: 20130927
  Transmission Date: 20140515
  Serious: Yes (Hospitalization, Disabling, Other)
  Sender: FDA-Public Use
  Company Number: None

PATIENT
  Age: 86 Year
  Sex: Male
  Weight: 65.77 kg

DRUGS (1)
  1. LEVOFLOXIN [Suspect]
     Indication: POSTOPERATIVE WOUND INFECTION
     Dosage: ONCE DAILY INTO A VEIN
     Dates: start: 20130822, end: 20130907

REACTIONS (7)
  - Hallucination [None]
  - Delusion [None]
  - Paranoia [None]
  - Urinary incontinence [None]
  - Diarrhoea [None]
  - Muscular weakness [None]
  - Gait disturbance [None]
